FAERS Safety Report 19586991 (Version 1)
Quarter: 2021Q3

REPORT INFORMATION
  Report Type: Spontaneous
  Country: US (occurrence: US)
  Receive Date: 20210720
  Receipt Date: 20210720
  Transmission Date: 20211014
  Serious: No
  Sender: FDA-Public Use
  Company Number: None

PATIENT
  Age: 66 Year
  Sex: Male
  Weight: 91 kg

DRUGS (1)
  1. LATANOPROST (LATANOPROST 0.005% SOLN,OPH) [Suspect]
     Active Substance: LATANOPROST
     Indication: GLAUCOMA
     Route: 031

REACTIONS (2)
  - Ocular hyperaemia [None]
  - Eye irritation [None]
